FAERS Safety Report 8091252 (Version 2)
Quarter: 2013Q1

REPORT INFORMATION
  Report Type: Spontaneous
  Country: JP (occurrence: None)
  Receive Date: 20110808
  Receipt Date: 20121221
  Transmission Date: 20140127
  Serious: Yes (Other)
  Sender: FDA-Public Use
  Company Number: JP-ACCORD-010167

PATIENT
  Age: 52 Year
  Sex: 0

DRUGS (6)
  1. PACLITAXEL [Suspect]
     Indication: INVASIVE DUCTAL BREAST CARCINOMA
  2. TAMOXIFEN [Suspect]
     Indication: INVASIVE DUCTAL BREAST CARCINOMA
  3. CYCLOPHOSPHAMIDE (CYCLOPHOSPHAMIDE) [Concomitant]
  4. 5-FU (5-FU) [Concomitant]
  5. TRASTUZUMAB (TRASTUZUMAB) [Concomitant]
  6. EPIRUBICIN (EPIRUBICIN) (EPIRUBICIN) [Concomitant]

REACTIONS (2)
  - Pain [None]
  - Arthralgia [None]
